FAERS Safety Report 8675145 (Version 15)
Quarter: 2014Q3

REPORT INFORMATION
  Report Type: Spontaneous
  Country: US (occurrence: US)
  Receive Date: 20120720
  Receipt Date: 20140930
  Transmission Date: 20150326
  Serious: Yes (Life-Threatening, Hospitalization, Congenital Anomaly, Other)
  Sender: FDA-Public Use
  Company Number: US-PFIZER INC-2012173653

PATIENT
  Sex: Male
  Weight: 3.2 kg

DRUGS (29)
  1. FOLIC ACID. [Concomitant]
     Active Substance: FOLIC ACID
     Dosage: 1 DF, 1X/DAY
     Route: 064
     Dates: start: 20090228, end: 20090317
  2. ZOLOFT [Suspect]
     Active Substance: SERTRALINE HYDROCHLORIDE
     Dosage: 100 MG, UNK
     Route: 064
  3. PROAIR HFA [Concomitant]
     Active Substance: ALBUTEROL SULFATE
     Dosage: 8.5 GM INHALE 2 PUFFS ORALLY EVERY 4 HOURS
     Route: 064
     Dates: start: 20081231
  4. PROTONIX [Concomitant]
     Active Substance: PANTOPRAZOLE SODIUM
     Dosage: 40 MG, 1X/DAY
     Route: 064
     Dates: start: 20090228, end: 20090317
  5. PRENATAL VITAMINS [Concomitant]
     Active Substance: VITAMINS
     Dosage: UNK
     Route: 064
     Dates: start: 20080815
  6. ZOLOFT [Suspect]
     Active Substance: SERTRALINE HYDROCHLORIDE
     Indication: PANIC ATTACK
     Dosage: 100 MG, 1X/DAY
     Route: 064
     Dates: start: 20060811, end: 20070103
  7. CLINDAMYCIN [Concomitant]
     Active Substance: CLINDAMYCIN\CLINDAMYCIN PHOSPHATE
     Dosage: 1 %, UNK
     Route: 064
     Dates: start: 20081114
  8. ZOLOFT [Suspect]
     Active Substance: SERTRALINE HYDROCHLORIDE
     Dosage: 225 MG, 1X/DAY
     Route: 064
     Dates: start: 20070731, end: 20080717
  9. SUDAFED [Concomitant]
     Active Substance: PSEUDOEPHEDRINE HYDROCHLORIDE
     Dosage: UNK
     Route: 064
  10. FOLIC ACID. [Concomitant]
     Active Substance: FOLIC ACID
     Dosage: 1600 UG, 1X/DAY
     Route: 064
     Dates: start: 20080815
  11. SERTRALINE [Concomitant]
     Active Substance: SERTRALINE HYDROCHLORIDE
     Dosage: 100 MG, 2X/DAY
     Route: 064
     Dates: start: 20080703
  12. PRENATAL VITAMINS [Concomitant]
     Active Substance: VITAMINS
     Dosage: UNK, 1X/DAY
     Route: 064
     Dates: start: 20090228, end: 20090317
  13. ZOLOFT [Suspect]
     Active Substance: SERTRALINE HYDROCHLORIDE
     Dosage: 150 MG, 1X/DAY
     Route: 064
     Dates: start: 20070104, end: 20070730
  14. PAXIL [Concomitant]
     Active Substance: PAROXETINE HYDROCHLORIDE
     Dosage: 20 MG, DAILY
     Route: 064
     Dates: start: 20080815
  15. REPLIVA [Concomitant]
     Active Substance: SUCCINIC ACID
     Dosage: 1 DF, 1X/DAY
     Route: 064
     Dates: start: 20090123, end: 20090317
  16. NITROFURANTOIN MONO/MAC [Concomitant]
     Dosage: 100 MG, 2X/DAY
     Route: 064
     Dates: start: 20090305
  17. PROPOXYPHENE-N/APAP [Concomitant]
     Dosage: 50-325 MG, EVERY FOUR HOURS AS NEEDED
     Route: 064
     Dates: start: 20080912
  18. SUCRALFATE. [Concomitant]
     Active Substance: SUCRALFATE
     Dosage: 1 G, 2X/DAY
     Route: 064
     Dates: start: 20090107
  19. BENADRYL [Concomitant]
     Active Substance: DIPHENHYDRAMINE HYDROCHLORIDE
     Dosage: UNK
     Route: 064
  20. PANTOPRAZOLE [Concomitant]
     Active Substance: PANTOPRAZOLE SODIUM
     Dosage: 40 MG, 1X/DAY
     Route: 064
     Dates: start: 20090123
  21. TERBUTALINE [Concomitant]
     Active Substance: TERBUTALINE
     Dosage: 5 MG, 4X/DAY (FOR EVERY SIX HOURS)
     Route: 064
     Dates: start: 20090218, end: 20090228
  22. ZOLOFT [Suspect]
     Active Substance: SERTRALINE HYDROCHLORIDE
     Indication: DEPRESSION
     Dosage: 50 MG, 1X/DAY
     Route: 064
     Dates: start: 20051017
  23. ZOLOFT [Suspect]
     Active Substance: SERTRALINE HYDROCHLORIDE
     Indication: ANXIETY
     Dosage: 100 MG, 1X/DAY
     Route: 064
     Dates: start: 20051129
  24. ZOLOFT [Suspect]
     Active Substance: SERTRALINE HYDROCHLORIDE
     Indication: OBSESSIVE-COMPULSIVE DISORDER
     Dosage: UNK
     Route: 064
     Dates: start: 20061219
  25. ZOLOFT [Suspect]
     Active Substance: SERTRALINE HYDROCHLORIDE
     Dosage: 10 MG, UNK
     Route: 064
     Dates: start: 20090228, end: 20090317
  26. TYLENOL [Concomitant]
     Active Substance: ACETAMINOPHEN
     Indication: PAIN
     Dosage: 325 MG, AS NEEDED
     Route: 064
     Dates: start: 20080815
  27. PAROXETINE [Concomitant]
     Active Substance: PAROXETINE\PAROXETINE HYDROCHLORIDE
     Dosage: 40 MG, 1X/DAY
     Route: 064
     Dates: start: 20080717
  28. XANAX [Concomitant]
     Active Substance: ALPRAZOLAM
     Dosage: UNK
     Route: 064
  29. BRETHINE [Concomitant]
     Active Substance: TERBUTALINE SULFATE
     Dosage: 0.25 MG, 3X/DAY
     Route: 064
     Dates: start: 20090318

REACTIONS (8)
  - Heart disease congenital [Not Recovered/Not Resolved]
  - Congenital aortic valve stenosis [Recovering/Resolving]
  - Mitral valve incompetence [Unknown]
  - Mitral valve incompetence [Recovered/Resolved]
  - Ventricular septal defect [Unknown]
  - Atrial septal defect [Unknown]
  - Maternal exposure timing unspecified [Not Recovered/Not Resolved]
  - Premature baby [Unknown]

NARRATIVE: CASE EVENT DATE: 20090319
